FAERS Safety Report 6636976-1 (Version None)
Quarter: 2010Q1

REPORT INFORMATION
  Report Type: 
  Country: None (occurrence: None)
  Receive Date: 20100316
  Receipt Date: 20100303
  Transmission Date: 20100710
  Serious: Yes (Hospitalization, Other)
  Sender: FDA-Public Use
  Company Number: DE-MILLENNIUM PHARMACEUTICALS, INC.-2010-01166

PATIENT

DRUGS (1)
  1. VELCADE [Suspect]
     Indication: PLASMACYTOMA
     Dosage: UNK
     Route: 042

REACTIONS (9)
  - ARTHRALGIA [None]
  - CHOLECYSTITIS [None]
  - HAEMOGLOBIN DECREASED [None]
  - INCONTINENCE [None]
  - MALAISE [None]
  - PNEUMONIA ASPIRATION [None]
  - POLYNEUROPATHY [None]
  - RENAL FAILURE [None]
  - RESPIRATORY FAILURE [None]
